FAERS Safety Report 8822295 (Version 3)
Quarter: 2012Q4

REPORT INFORMATION
  Report Type: 
  Country: GB (occurrence: GB)
  Receive Date: 20121003
  Receipt Date: 20121122
  Transmission Date: 20130627
  Serious: Yes (Hospitalization)
  Sender: FDA-Public Use
  Company Number: PHFR2012GB004798

PATIENT
  Age: 35 Year
  Sex: Male

DRUGS (3)
  1. CLOZARIL [Suspect]
     Indication: SCHIZOPHRENIA
     Dosage: 600 mg
     Route: 048
     Dates: end: 20120905
  2. RISPERIDONE [Concomitant]
     Indication: SCHIZOPHRENIA
     Dosage: 2.5 mg, UNK
     Route: 048
     Dates: start: 2011
  3. RISPERIDONE [Concomitant]
     Dosage: 5 mg, UNK
     Route: 048
     Dates: start: 20120907

REACTIONS (3)
  - Self injurious behaviour [Unknown]
  - Constipation [Recovered/Resolved]
  - Body temperature decreased [Unknown]
